FAERS Safety Report 14178744 (Version 1)
Quarter: 2017Q4

REPORT INFORMATION
  Report Type: Spontaneous
  Country: RO (occurrence: RO)
  Receive Date: 20171110
  Receipt Date: 20171110
  Transmission Date: 20180321
  Serious: Yes (Death)
  Sender: FDA-Public Use
  Company Number: RO-ACTELION-A-CH2017-161922

PATIENT
  Age: 39 Year
  Sex: Female

DRUGS (12)
  1. ASPENTER [Concomitant]
     Active Substance: ASPIRIN
  2. CARVEDILOL. [Concomitant]
     Active Substance: CARVEDILOL
  3. METHOTREXATE. [Concomitant]
     Active Substance: METHOTREXATE
  4. TROMBOSTOP [Concomitant]
     Active Substance: ACENOCOUMAROL
  5. TRACLEER [Suspect]
     Active Substance: BOSENTAN
     Indication: SCLERODERMA ASSOCIATED DIGITAL ULCER
     Dosage: 125 MG, UNK
     Route: 048
  6. PREDNISON [Concomitant]
     Active Substance: PREDNISONE
  7. FOLIC ACID. [Concomitant]
     Active Substance: FOLIC ACID
  8. VIGANTOL OIL [Concomitant]
  9. MOVALIS [Concomitant]
     Active Substance: MELOXICAM
  10. PENTOXI [Concomitant]
  11. PARACETAMOL W/TRAMADOL [Concomitant]
  12. DICLAC [Concomitant]
     Active Substance: DICLOFENAC

REACTIONS (1)
  - Pulmonary embolism [Fatal]
